FAERS Safety Report 17893691 (Version 2)
Quarter: 2020Q3

REPORT INFORMATION
  Report Type: Spontaneous
  Country: CH (occurrence: CH)
  Receive Date: 20200615
  Receipt Date: 20200713
  Transmission Date: 20201103
  Serious: Yes (Hospitalization, Other)
  Sender: FDA-Public Use
  Company Number: CH-LUPIN PHARMACEUTICALS INC.-2020-02798

PATIENT
  Age: 38 Year
  Sex: Male

DRUGS (1)
  1. SILDENAFIL TABLETS [Suspect]
     Active Substance: SILDENAFIL
     Indication: LIBIDO DISORDER
     Dosage: 3 DOSAGE FORM, QD (MULTIPLE TABLETS)
     Route: 048

REACTIONS (3)
  - Maculopathy [Recovered/Resolved]
  - Overdose [Unknown]
  - Retinal haemorrhage [Recovered/Resolved]
